FAERS Safety Report 25649428 (Version 1)
Quarter: 2025Q3

REPORT INFORMATION
  Report Type: Spontaneous
  Country: EU (occurrence: EU)
  Receive Date: 20250806
  Receipt Date: 20250806
  Transmission Date: 20251020
  Serious: Yes (Other)
  Sender: SANOFI AVENTIS
  Company Number: None

PATIENT
  Age: 61 Year
  Sex: Female
  Weight: 61 kg

DRUGS (1)
  1. DUPIXENT [Suspect]
     Active Substance: DUPILUMAB
     Indication: Asthma
     Dosage: 300 MG, Q15D
     Route: 058
     Dates: start: 20240725, end: 20250108

REACTIONS (6)
  - Asthenia [Recovering/Resolving]
  - Malaise [Recovering/Resolving]
  - Gastrointestinal motility disorder [Recovering/Resolving]
  - Anal pruritus [Recovering/Resolving]
  - Weight increased [Recovering/Resolving]
  - Vertigo [Recovering/Resolving]

NARRATIVE: CASE EVENT DATE: 20241115
